FAERS Safety Report 8866125 (Version 2)
Quarter: 2012Q4

REPORT INFORMATION
  Report Type: 
  Country: US (occurrence: US)
  Receive Date: 20121025
  Receipt Date: 20121101
  Transmission Date: 20130627
  Serious: Yes (Hospitalization, Other)
  Sender: FDA-Public Use
  Company Number: US-PFIZER INC-2012265332

PATIENT
  Sex: Female

DRUGS (7)
  1. PROTONIX [Suspect]
     Indication: ACID REFLUX (ESOPHAGEAL)
     Dosage: UNK
  2. PROTONIX [Suspect]
     Route: 042
  3. ZANTAC [Suspect]
     Indication: ACID REFLUX (ESOPHAGEAL)
     Dosage: UNK
  4. ZOFRAN [Concomitant]
     Indication: NAUSEA
     Dosage: UNK
  5. ZOFRAN [Concomitant]
     Indication: VOMITING
  6. REGLAN [Concomitant]
     Indication: NAUSEA
     Dosage: UNK
  7. REGLAN [Concomitant]
     Indication: VOMITING

REACTIONS (7)
  - Placenta praevia haemorrhage [Unknown]
  - Premature labour [Unknown]
  - Injection site infection [Unknown]
  - Breast infection [Unknown]
  - Urinary tract infection [Unknown]
  - Haemoglobin decreased [Unknown]
  - Nasopharyngitis [Unknown]
